FAERS Safety Report 25212981 (Version 1)
Quarter: 2025Q2

REPORT INFORMATION
  Report Type: Spontaneous
  Country: CN (occurrence: CN)
  Receive Date: 20250418
  Receipt Date: 20250418
  Transmission Date: 20250716
  Serious: Yes (Other)
  Sender: AUROBINDO
  Company Number: CN-AUROBINDO-AUR-APL-2025-019799

PATIENT
  Age: 23 Year
  Sex: Female

DRUGS (1)
  1. SERTRALINE HYDROCHLORIDE [Suspect]
     Active Substance: SERTRALINE HYDROCHLORIDE
     Indication: Depression
     Dosage: 40 DOSAGE FORM, ONCE A DAY
     Route: 065
     Dates: start: 20250402, end: 20250402

REACTIONS (4)
  - Asthenia [Recovering/Resolving]
  - Haematemesis [Recovering/Resolving]
  - Dizziness [Recovering/Resolving]
  - Overdose [Recovering/Resolving]

NARRATIVE: CASE EVENT DATE: 20250402
